FAERS Safety Report 6572950-1 (Version None)
Quarter: 2010Q1

REPORT INFORMATION
  Report Type: 
  Country: None (occurrence: None)
  Receive Date: 20100208
  Receipt Date: 20100129
  Transmission Date: 20100710
  Serious: Yes (Hospitalization)
  Sender: FDA-Public Use
  Company Number: US-BIOGENIDEC-2009BI026070

PATIENT
  Age: 67 Year
  Sex: Female

DRUGS (3)
  1. AVONEX [Suspect]
     Indication: MULTIPLE SCLEROSIS
     Route: 030
     Dates: start: 20071115
  2. AVONEX [Suspect]
     Route: 030
     Dates: start: 20071115
  3. AVONEX [Suspect]
     Route: 030
     Dates: start: 20010905, end: 20040801

REACTIONS (5)
  - ANAEMIA [None]
  - DIABETES MELLITUS [None]
  - LIMB INJURY [None]
  - OSTEOMYELITIS [None]
  - RENAL FAILURE [None]
